FAERS Safety Report 23460711 (Version 4)
Quarter: 2025Q2

REPORT INFORMATION
  Report Type: Spontaneous
  Country: US (occurrence: US)
  Receive Date: 20240131
  Receipt Date: 20250402
  Transmission Date: 20250716
  Serious: No
  Sender: SANOFI AVENTIS
  Company Number: US-SA-SAC20240124000222

PATIENT
  Age: 43 Year
  Sex: Female
  Weight: 74.83 kg

DRUGS (42)
  1. DUPIXENT [Suspect]
     Active Substance: DUPILUMAB
     Indication: Rhinitis allergic
     Dosage: 300 MG, QOW
     Route: 058
     Dates: start: 20230315
  2. DUPIXENT [Suspect]
     Active Substance: DUPILUMAB
     Indication: Illness
  3. TYVASO DPI [Suspect]
     Active Substance: TREPROSTINIL
  4. UPTRAVI [Suspect]
     Active Substance: SELEXIPAG
  5. WEGOVY [Suspect]
     Active Substance: SEMAGLUTIDE
  6. WINREVAIR [Suspect]
     Active Substance: SOTATERCEPT-CSRK
  7. FERROUS SULFATE [Concomitant]
     Active Substance: FERROUS SULFATE
  8. ASCORBIC ACID\VITAMIN B COMPLEX [Concomitant]
     Active Substance: ASCORBIC ACID\VITAMIN B COMPLEX
  9. OPSUMIT [Concomitant]
     Active Substance: MACITENTAN
  10. SPIRONOLACTONE [Concomitant]
     Active Substance: SPIRONOLACTONE
  11. DILTIAZEM HYDROCHLORIDE [Concomitant]
     Active Substance: DILTIAZEM HYDROCHLORIDE
  12. FUROSEMIDE [Concomitant]
     Active Substance: FUROSEMIDE
  13. TADALAFIL [Concomitant]
     Active Substance: TADALAFIL
  14. DOCUSATE CALCIUM [Concomitant]
     Active Substance: DOCUSATE CALCIUM
  15. HERBALS\TURMERIC [Concomitant]
     Active Substance: HERBALS\TURMERIC
  16. ASPIRIN [Concomitant]
     Active Substance: ASPIRIN
  17. CLOBETASOL PROPIONATE [Concomitant]
     Active Substance: CLOBETASOL PROPIONATE
  18. ASPIRIN [Concomitant]
     Active Substance: ASPIRIN
  19. ACETAMINOPHEN [Concomitant]
     Active Substance: ACETAMINOPHEN
  20. ZYRTEC [Concomitant]
     Active Substance: CETIRIZINE HYDROCHLORIDE
  21. PLAVIX [Concomitant]
     Active Substance: CLOPIDOGREL BISULFATE
  22. CALADRYL [Concomitant]
     Active Substance: CALAMINE\DIPHENHYDRAMINE HYDROCHLORIDE\FERRIC OXIDE RED\PRAMOXINE HYDROCHLORIDE\ZINC OXIDE
  23. OMEPRAZOLE [Concomitant]
     Active Substance: OMEPRAZOLE
  24. FLUTICASONE PROPIONATE [Concomitant]
     Active Substance: FLUTICASONE PROPIONATE
  25. HERBALS\TURMERIC [Concomitant]
     Active Substance: HERBALS\TURMERIC
  26. DOCUSATE CALCIUM [Concomitant]
     Active Substance: DOCUSATE CALCIUM
  27. TYVASO [Concomitant]
     Active Substance: TREPROSTINIL
  28. AMOXICILLIN [Concomitant]
     Active Substance: AMOXICILLIN
  29. FEXOFENADINE HYDROCHLORIDE [Concomitant]
     Active Substance: FEXOFENADINE HYDROCHLORIDE
  30. HYDROCORTISONE [Concomitant]
     Active Substance: HYDROCORTISONE
  31. BETAMETHASONE DIPROPIONATE [Concomitant]
     Active Substance: BETAMETHASONE DIPROPIONATE
  32. CLOPIDOGREL [Concomitant]
     Active Substance: CLOPIDOGREL BISULFATE
  33. VITAMIN B COMPLEX [Concomitant]
     Active Substance: CYANOCOBALAMIN\DEXPANTHENOL\NIACINAMIDE\PYRIDOXINE HYDROCHLORIDE\RIBOFLAVIN 5^-PHOSPHATE SODIUM\THIA
  34. FAMOTIDINE [Concomitant]
     Active Substance: FAMOTIDINE
  35. CETIRIZINE HCL [Concomitant]
     Active Substance: CETIRIZINE HYDROCHLORIDE
  36. PANTOPRAZOLE SODIUM [Concomitant]
     Active Substance: PANTOPRAZOLE SODIUM
  37. MUPIROCIN [Concomitant]
     Active Substance: MUPIROCIN
  38. SILDENAFIL CITRATE [Concomitant]
     Active Substance: SILDENAFIL CITRATE
  39. O pur oxygen [Concomitant]
  40. MIRENA [Concomitant]
     Active Substance: LEVONORGESTREL
  41. TRIAMCINOLONE ACETONIDE [Concomitant]
     Active Substance: TRIAMCINOLONE ACETONIDE
  42. FERROUS SULFATE [Concomitant]
     Active Substance: FERROUS SULFATE

REACTIONS (12)
  - Cough [Unknown]
  - Dehydration [Unknown]
  - Nausea [Unknown]
  - Vomiting [Unknown]
  - Diarrhoea [Unknown]
  - Pruritus [Unknown]
  - Skin haemorrhage [Unknown]
  - Skin weeping [Unknown]
  - Skin fissures [Unknown]
  - Dizziness [Unknown]
  - Epistaxis [Unknown]
  - Product use in unapproved indication [Unknown]

NARRATIVE: CASE EVENT DATE: 20230315
